FAERS Safety Report 23159942 (Version 3)
Quarter: 2024Q1

REPORT INFORMATION
  Report Type: Report from Study
  Country: US (occurrence: US)
  Receive Date: 20231108
  Receipt Date: 20240107
  Transmission Date: 20240409
  Serious: Yes (Hospitalization, Other)
  Sender: FDA-Public Use
  Company Number: US-002147023-NVSC2023US237937

PATIENT
  Sex: Female

DRUGS (2)
  1. KISQALI [Suspect]
     Active Substance: RIBOCICLIB
     Indication: Product used for unknown indication
     Dosage: UNK (STARTED ON A LOWER DOSE)
     Route: 065
  2. KISQALI [Suspect]
     Active Substance: RIBOCICLIB
     Dosage: UNK (NOW ON AN INCREASE DOSE)
     Route: 065

REACTIONS (6)
  - Sepsis [Unknown]
  - Renal impairment [Unknown]
  - Pain [Unknown]
  - Sneezing [Unknown]
  - Fatigue [Unknown]
  - Inappropriate schedule of product administration [Unknown]
